FAERS Safety Report 18899163 (Version 1)
Quarter: 2021Q1

REPORT INFORMATION
  Report Type: Report from Study
  Country: IN (occurrence: IN)
  Receive Date: 20210216
  Receipt Date: 20210216
  Transmission Date: 20210420
  Serious: Yes (Hospitalization)
  Sender: FDA-Public Use
  Company Number: IN-MYLANLABS-2021M1009232

PATIENT
  Age: 47 Year
  Sex: Male

DRUGS (1)
  1. DEXAMETHASONE. [Suspect]
     Active Substance: DEXAMETHASONE
     Indication: COVID-19
     Dosage: UNK
     Route: 042

REACTIONS (3)
  - Blindness [Recovered/Resolved]
  - Off label use [Unknown]
  - Rhinocerebral mucormycosis [Recovered/Resolved]

NARRATIVE: CASE EVENT DATE: 2020
